FAERS Safety Report 8780304 (Version 1)
Quarter: 2012Q4

REPORT INFORMATION
  Report Type: Spontaneous
  Country: US (occurrence: None)
  Receive Date: 20120904
  Receipt Date: 20120904
  Transmission Date: 20130627
  Serious: No
  Sender: FDA-Public Use
  Company Number: None

PATIENT
  Age: 62 Year
  Sex: Female

DRUGS (1)
  1. ENBREL AMGEN AND PFIZER [Suspect]
     Route: 058

REACTIONS (2)
  - Rash erythematous [None]
  - No therapeutic response [None]
